FAERS Safety Report 14205740 (Version 2)
Quarter: 2017Q4

REPORT INFORMATION
  Report Type: Spontaneous
  Country: IT (occurrence: IT)
  Receive Date: 20171120
  Receipt Date: 20171127
  Transmission Date: 20180321
  Serious: Yes (Other)
  Sender: FDA-Public Use
  Company Number: IT-PFIZER INC-2017496451

PATIENT
  Age: 55 Year
  Sex: Female
  Weight: 110 kg

DRUGS (10)
  1. CYCLOPHOSPHAMIDE. [Suspect]
     Active Substance: CYCLOPHOSPHAMIDE
     Dosage: 600 MG/M2, 4 CYCLES
  2. LAPATINIB [Suspect]
     Active Substance: LAPATINIB
     Dosage: 1250 MG PER DAY IN CONTINUOUS ORAL ADMINISTRATION
     Route: 048
  3. TRASTUZUMAB. [Suspect]
     Active Substance: TRASTUZUMAB
     Dosage: 6 MG/KG, CYCLIC (EVERY 21 DAYS)
  4. CAPECITABINE. [Suspect]
     Active Substance: CAPECITABINE
     Dosage: 2000 MG/M2, CYCLIC (FROM DAY 1 TO DAY 14 EVERY 21 DAYS)
  5. DOCETAXEL. [Suspect]
     Active Substance: DOCETAXEL
     Dosage: 75 MG/M2, CYCLIC (EVERY 21 DAYS)
  6. EPIRUBICIN HCL [Suspect]
     Active Substance: EPIRUBICIN HYDROCHLORIDE
     Dosage: 90 MG/M2, 4 CYCLES
  7. LETROZOLE. [Suspect]
     Active Substance: LETROZOLE
     Dosage: UNK
  8. PACLITAXEL. [Suspect]
     Active Substance: PACLITAXEL
     Dosage: 175 MG/M2, 4 CYCLES
  9. TRASTUZUMAB. [Suspect]
     Active Substance: TRASTUZUMAB
     Dosage: 6 MG/KG, CYCLIC (EVERY 3 WEEKS FOR 1 YEAR)
  10. TRASTUZUMAB. [Suspect]
     Active Substance: TRASTUZUMAB
     Dosage: 8 MG/KG, CYCLIC (EVERY 3 WEEKS FOR 1 YEAR)

REACTIONS (4)
  - Lymphangiosis carcinomatosa [Recovered/Resolved]
  - Neoplasm progression [Recovered/Resolved]
  - Pleural effusion [Recovered/Resolved]
  - Osteosclerosis [Unknown]
